FAERS Safety Report 5372726-7 (Version None)
Quarter: 2007Q2

REPORT INFORMATION
  Report Type: 
  Country: None (occurrence: None)
  Receive Date: 20070619
  Receipt Date: 20060606
  Transmission Date: 20071010
  Serious: Yes (Other)
  Sender: FDA-Public Use
  Company Number: WAES 0604USA01470

PATIENT
  Age: 58 Year
  Sex: Male
  Weight: 136.0791 kg

DRUGS (8)
  1. COZAAR [Suspect]
     Indication: HYPERTENSION
     Dosage: 100 MG/DAILY/PO
     Route: 048
     Dates: start: 20060214, end: 20060301
  2. GLUCOPHAGE [Concomitant]
  3. HYDRODIURIL [Concomitant]
  4. LIPITOR [Concomitant]
  5. ASPIRIN [Concomitant]
  6. ATENOLOL [Concomitant]
  7. GLYBURIDE [Concomitant]
  8. NIFEDIPINE [Concomitant]

REACTIONS (1)
  - RASH GENERALISED [None]
